FAERS Safety Report 10464537 (Version 1)
Quarter: 2014Q3

REPORT INFORMATION
  Report Type: Spontaneous
  Country: GB (occurrence: GB)
  Receive Date: 20140919
  Receipt Date: 20140919
  Transmission Date: 20150326
  Serious: Yes (Hospitalization)
  Sender: FDA-Public Use
  Company Number: PHHY2014GB119321

PATIENT
  Age: 54 Year
  Sex: Female
  Weight: 50.5 kg

DRUGS (20)
  1. CETIRIZINE [Concomitant]
     Active Substance: CETIRIZINE HYDROCHLORIDE
  2. MOXIFLOXACIN [Concomitant]
     Active Substance: MOXIFLOXACIN
  3. THIAMINE [Concomitant]
     Active Substance: THIAMINE
  4. AMIODARONE [Suspect]
     Active Substance: AMIODARONE
     Indication: ARRHYTHMIA SUPRAVENTRICULAR
     Dosage: 200 MG, QD
     Route: 048
     Dates: start: 20140826, end: 20140902
  5. DOMPERIDONE [Concomitant]
     Active Substance: DOMPERIDONE
  6. ISONIAZID. [Concomitant]
     Active Substance: ISONIAZID
  7. PARACETAMOL [Concomitant]
     Active Substance: ACETAMINOPHEN
  8. PREDNISOLONE. [Concomitant]
     Active Substance: PREDNISOLONE
  9. PYRIDOXIN [Concomitant]
     Active Substance: PYRIDOXINE
  10. RANITIDINE [Concomitant]
     Active Substance: RANITIDINE\RANITIDINE HYDROCHLORIDE
  11. CLOPIDOGREL [Concomitant]
     Active Substance: CLOPIDOGREL BISULFATE
  12. METOPROLOL [Concomitant]
     Active Substance: METOPROLOL
  13. PYRAZINAMIDE. [Concomitant]
     Active Substance: PYRAZINAMIDE
  14. VITAMIN B COMPLEX [Concomitant]
     Active Substance: CYANOCOBALAMIN\DEXPANTHENOL\NIACINAMIDE\PYRIDOXINE HYDROCHLORIDE\RIBOFLAVIN 5^-PHOSPHATE SODIUM\THIAMINE HYDROCHLORIDE\VITAMIN B COMPLEX
  15. EPOETIN NOS [Concomitant]
     Active Substance: ERYTHROPOIETIN
  16. RIFAMPICIN [Suspect]
     Active Substance: RIFAMPIN
     Indication: ARRHYTHMIA SUPRAVENTRICULAR
     Dosage: 600 MG, QD
     Route: 048
     Dates: start: 20140816
  17. ATORVASTATIN [Concomitant]
     Active Substance: ATORVASTATIN
  18. ETHAMBUTOL [Concomitant]
     Active Substance: ETHAMBUTOL HYDROCHLORIDE
  19. OMEPRAZOLE. [Concomitant]
     Active Substance: OMEPRAZOLE
  20. RAMIPRIL. [Concomitant]
     Active Substance: RAMIPRIL

REACTIONS (3)
  - Acute pulmonary oedema [Recovered/Resolved]
  - Drug interaction [Unknown]
  - Drug ineffective [Unknown]

NARRATIVE: CASE EVENT DATE: 20140831
